FAERS Safety Report 21129799 (Version 4)
Quarter: 2022Q4

REPORT INFORMATION
  Report Type: Spontaneous
  Country: US (occurrence: US)
  Receive Date: 20220726
  Receipt Date: 20221128
  Transmission Date: 20230112
  Serious: Yes (Other)
  Sender: FDA-Public Use
  Company Number: US-SA-SAC20220722000219

PATIENT
  Sex: Male

DRUGS (1)
  1. DUPIXENT [Suspect]
     Active Substance: DUPILUMAB
     Indication: Dermatitis atopic
     Dosage: 300 MG, Q4W
     Route: 058

REACTIONS (14)
  - Pneumonia [Unknown]
  - Croup infectious [Unknown]
  - Influenza like illness [Unknown]
  - Dyspnoea [Unknown]
  - Cough [Unknown]
  - Respiratory disorder [Unknown]
  - Peripheral swelling [Unknown]
  - Insomnia [Unknown]
  - Pruritus [Unknown]
  - Drug hypersensitivity [Unknown]
  - Rash erythematous [Not Recovered/Not Resolved]
  - Rash [Unknown]
  - Injection site reaction [Unknown]
  - Drug effect less than expected [Unknown]
